FAERS Safety Report 6980003-3 (Version None)
Quarter: 2010Q3

REPORT INFORMATION
  Report Type: 
  Country: None (occurrence: None)
  Receive Date: 20100914
  Receipt Date: 20100908
  Transmission Date: 20110219
  Serious: Yes (Other)
  Sender: FDA-Public Use
  Company Number: US-PFIZER INC-2009219383

PATIENT
  Sex: Male
  Weight: 79.4 kg

DRUGS (8)
  1. CELEBREX [Interacting]
     Indication: ARTHRITIS
     Dosage: 200 MG, 1X/DAY
  2. AMLODIPINE BESYLATE [Suspect]
     Indication: HYPERTENSION
     Dosage: 5 MG, UNK
  3. CANASA [Interacting]
  4. NEXIUM [Concomitant]
     Dosage: 40 MG, UNK
  5. CLARINEX [Concomitant]
     Dosage: 5 MG, 1X/DAY
  6. FLUTICASONE [Concomitant]
     Dosage: UNK
     Route: 045
  7. TRICOR [Concomitant]
     Dosage: 145 MG, UNK
  8. DIOVAN HCT [Concomitant]
     Indication: HYPERTENSION
     Dosage: [VALSARTAN 12.5 MG]/[HYDROCHLOROTHIAZIDE320 MG], DAILY

REACTIONS (6)
  - BODY HEIGHT DECREASED [None]
  - DRUG INTERACTION [None]
  - GASTROENTERITIS RADIATION [None]
  - HYPERTENSION [None]
  - LOSS OF CONSCIOUSNESS [None]
  - RENAL DISORDER [None]
